FAERS Safety Report 5209753-6 (Version None)
Quarter: 2006Q4

REPORT INFORMATION
  Report Type: 
  Country: None (occurrence: None)
  Receive Date: 20061116
  Receipt Date: 20060526
  Transmission Date: 20070319
  Serious: Yes (Hospitalization, Other)
  Sender: FDA-Public Use
  Company Number: 27867

PATIENT
  Age: 50 Year
  Sex: Female

DRUGS (1)
  1. CISPLATIN [Suspect]
     Indication: NON-SMALL CELL LUNG CANCER
     Dosage: 75MG/M2/Q3WKS/IV
     Route: 042
     Dates: start: 20050329

REACTIONS (2)
  - ANAEMIA [None]
  - NEUTROPENIA [None]
